FAERS Safety Report 6165438-3 (Version None)
Quarter: 2009Q2

REPORT INFORMATION
  Report Type: 
  Country: None (occurrence: None)
  Receive Date: 20090423
  Receipt Date: 20090420
  Transmission Date: 20091009
  Serious: Yes (Death)
  Sender: FDA-Public Use
  Company Number: PHHY2009JP14950

PATIENT

DRUGS (1)
  1. VOLTAREN [Suspect]
     Route: 054

REACTIONS (2)
  - ANAPHYLACTIC SHOCK [None]
  - MALAISE [None]
